FAERS Safety Report 7636488-2 (Version None)
Quarter: 2011Q3

REPORT INFORMATION
  Report Type: 
  Country: None (occurrence: None)
  Receive Date: 20110726
  Receipt Date: 20090930
  Transmission Date: 20111222
  Serious: Yes (Other)
  Sender: FDA-Public Use
  Company Number: US-BAYER-2011-009464

PATIENT
  Age: 39 Year
  Sex: Male
  Weight: 95 kg

DRUGS (31)
  1. PROCRIT [Concomitant]
     Indication: ANAEMIA
  2. ZOSYN [Concomitant]
     Indication: SEPSIS
     Dosage: 2.25 MG, QID
     Route: 042
     Dates: start: 20070111
  3. LEVAQUIN [Concomitant]
     Indication: SEPSIS
     Dosage: 750 MG, EVERY 48 HOURS
     Route: 042
     Dates: start: 20070111
  4. TRASYLOL [Suspect]
     Indication: TRICUSPID VALVE REPLACEMENT
     Dosage: 1 ML, ONCE
     Route: 042
     Dates: start: 20070117, end: 20070117
  5. VECURONIUM BROMIDE [Concomitant]
     Dosage: 20 MG, UNK
     Route: 042
     Dates: start: 20070117, end: 20070117
  6. TRASYLOL [Suspect]
     Dosage: 200 ML, LOADING DOSE
     Route: 042
     Dates: start: 20070117, end: 20070117
  7. PROTAMINE SULFATE [Concomitant]
     Dosage: 300 MG, UNK
     Route: 042
     Dates: start: 20070117, end: 20070117
  8. ALBUMIN (HUMAN) [Concomitant]
     Dosage: 200 MG, UNK
     Route: 042
     Dates: start: 20070117, end: 20070117
  9. PLATELETS [Concomitant]
     Dosage: 6 U, UNK
     Route: 042
     Dates: start: 20070117
  10. TRASYLOL [Suspect]
     Dosage: 50 ML/HOUR, INFUSION
     Route: 042
     Dates: start: 20070117, end: 20070117
  11. NAFCILLIN [Concomitant]
     Indication: SEPSIS
  12. GENTAMYCIN SULFATE [Concomitant]
     Indication: SEPSIS
  13. XIGRIS [Concomitant]
     Dosage: UNK
     Route: 042
     Dates: start: 20070111
  14. FRESH FROZEN PLASMA [Concomitant]
     Dosage: 4 U, UNK
     Route: 042
     Dates: start: 20070117
  15. FENTANYL [Concomitant]
     Indication: SEDATION
     Dosage: 250 MG, UNK
     Route: 042
     Dates: start: 20070117, end: 20070117
  16. HEPARIN [Concomitant]
     Indication: THROMBOSIS PROPHYLAXIS
     Dosage: 5000 U, QD
     Route: 058
     Dates: start: 20070111
  17. HEPARIN [Concomitant]
     Dosage: 32000 U
     Route: 042
     Dates: start: 20070117, end: 20070117
  18. PHENYLEPHRINE [PHENYLEPHRINE] [Concomitant]
     Indication: BLOOD PRESSURE MANAGEMENT
     Dosage: 150 MCG/MIN
     Route: 042
     Dates: start: 20070111
  19. LASIX [Concomitant]
     Dosage: 40 MG, UNK
     Route: 042
     Dates: start: 20070117, end: 20070117
  20. NITROGLYCERIN [Concomitant]
     Dosage: 1 CC
     Route: 042
     Dates: start: 20070117, end: 20070117
  21. NAFCILLIN [Concomitant]
     Dosage: 0.02
     Route: 042
     Dates: start: 20070117, end: 20070117
  22. DIFLUCAN [Concomitant]
     Indication: FUNGAL INFECTION
  23. VANCOMYCIN [Concomitant]
     Indication: SEPSIS
     Dosage: 1 G, QD
     Route: 042
     Dates: start: 20070111
  24. MANNITOL [Concomitant]
     Dosage: 50 MG, UNK
     Route: 042
     Dates: start: 20070117, end: 20070117
  25. RED BLOOD CELLS [Concomitant]
     Dosage: 4 U, UNK
     Route: 042
     Dates: start: 20070117
  26. HUMULIN N [Concomitant]
     Indication: BLOOD GLUCOSE INCREASED
     Dosage: UNK
  27. NOREPINEPHRINE BITARTRATE [Concomitant]
     Dosage: UNK
     Route: 042
     Dates: start: 20070117, end: 20070117
  28. DAPTOMYCIN [Concomitant]
     Indication: SEPSIS
  29. PROTONIX [Concomitant]
     Indication: GASTROOESOPHAGEAL REFLUX DISEASE
     Dosage: 40 MG, QD
     Route: 042
     Dates: start: 20070111
  30. VERSED [Concomitant]
     Dosage: 10 MG, UNK
     Route: 042
     Dates: start: 20070117, end: 20070117
  31. DOPAMINE HCL [Concomitant]
     Dosage: UNK
     Route: 042
     Dates: start: 20070117, end: 20070117

REACTIONS (13)
  - FEAR OF DEATH [None]
  - ANHEDONIA [None]
  - MULTI-ORGAN FAILURE [None]
  - RENAL FAILURE [None]
  - RENAL INJURY [None]
  - PAIN [None]
  - NERVOUSNESS [None]
  - EMOTIONAL DISTRESS [None]
  - DEPRESSION [None]
  - INJURY [None]
  - UNEVALUABLE EVENT [None]
  - FEAR [None]
  - ANXIETY [None]
